FAERS Safety Report 5320609-0 (Version None)
Quarter: 2007Q2

REPORT INFORMATION
  Report Type: 
  Country: None (occurrence: None)
  Receive Date: 20070509
  Receipt Date: 20070501
  Transmission Date: 20071010
  Serious: Yes (Other)
  Sender: FDA-Public Use
  Company Number: US-PFIZER INC-2007035944

PATIENT
  Sex: Female
  Weight: 52.2 kg

DRUGS (3)
  1. VIAGRA [Suspect]
     Indication: INFERTILITY
     Route: 054
  2. ESTRACE [Concomitant]
  3. TOPAMAX [Concomitant]

REACTIONS (1)
  - VISION BLURRED [None]
